FAERS Safety Report 7650092-1 (Version None)
Quarter: 2011Q3

REPORT INFORMATION
  Report Type: 
  Country: None (occurrence: None)
  Receive Date: 20110802
  Receipt Date: 20110726
  Transmission Date: 20111222
  Serious: Yes (Disabling)
  Sender: FDA-Public Use
  Company Number: DE-ROCHE-672085

PATIENT
  Sex: Female
  Weight: 65 kg

DRUGS (6)
  1. DOCETAXEL [Suspect]
     Dosage: LAST DOSE PRIOR TO SAE: 17 NOV 2009,
     Route: 042
     Dates: start: 20091027, end: 20091124
  2. BEVACIZUMAB [Suspect]
     Dosage: LAST DOSE PRIOR TO SAE:17 NOV 2009, THERAPY WAS TEMPORARILY INTERUPTED.
     Route: 042
     Dates: start: 20091027, end: 20091124
  3. BEVACIZUMAB [Suspect]
     Route: 042
     Dates: start: 20091208
  4. CAPECITABINE [Suspect]
     Dosage: LAST DOSE PRIOR TO SAE: 17 NOV 2009, DOSE FORM ORAL, FREQUENCY DAILY.
     Route: 048
     Dates: start: 20091027, end: 20091124
  5. CAPECITABINE [Suspect]
     Route: 048
     Dates: start: 20091208
  6. DOCETAXEL [Suspect]
     Route: 042
     Dates: start: 20091208

REACTIONS (1)
  - PALMAR-PLANTAR ERYTHRODYSAESTHESIA SYNDROME [None]
